FAERS Safety Report 23458569 (Version 1)
Quarter: 2024Q1

REPORT INFORMATION
  Report Type: Report from Study
  Country: NL (occurrence: NL)
  Receive Date: 20240130
  Receipt Date: 20240130
  Transmission Date: 20240409
  Serious: Yes (Other)
  Sender: FDA-Public Use
  Company Number: NL-TEVA-VS-3137804

PATIENT

DRUGS (4)
  1. DIAZEPAM [Suspect]
     Active Substance: DIAZEPAM
     Indication: Product used for unknown indication
     Route: 065
  2. DOXEPIN [Suspect]
     Active Substance: DOXEPIN
     Indication: Product used for unknown indication
     Route: 065
  3. HYDROCORTISONE [Suspect]
     Active Substance: HYDROCORTISONE
     Indication: Product used for unknown indication
     Route: 065
  4. SODIUM OXYBATE [Suspect]
     Active Substance: SODIUM OXYBATE
     Indication: Product used for unknown indication
     Route: 065

REACTIONS (31)
  - Fungal infection [Unknown]
  - Malaise [Unknown]
  - Sedation [Unknown]
  - Muscle spasms [Unknown]
  - Hunger [Unknown]
  - Dry skin [Unknown]
  - Fatigue [Unknown]
  - Circadian rhythm sleep disorder [Unknown]
  - Asthma [Unknown]
  - Blood pressure decreased [Unknown]
  - Dehydration [Unknown]
  - Swollen tongue [Unknown]
  - Hyponatraemia [Unknown]
  - Neuralgia [Unknown]
  - Hypersensitivity [Unknown]
  - Weight decreased [Unknown]
  - Drug hypersensitivity [Unknown]
  - Pharyngeal oedema [Unknown]
  - Dyspnoea [Unknown]
  - Flushing [Unknown]
  - Eye inflammation [Unknown]
  - Thirst [Unknown]
  - Abnormal behaviour [Unknown]
  - Photopsia [Unknown]
  - Skin disorder [Unknown]
  - Peripheral swelling [Unknown]
  - Arthralgia [Unknown]
  - Mast cell activation syndrome [Unknown]
  - Food craving [Unknown]
  - Disorientation [Unknown]
  - Stress [Unknown]
